FAERS Safety Report 24387154 (Version 1)
Quarter: 2024Q4

REPORT INFORMATION
  Report Type: Spontaneous
  Country: US (occurrence: US)
  Receive Date: 20241002
  Receipt Date: 20241002
  Transmission Date: 20250114
  Serious: No
  Sender: QOL
  Company Number: US-QOL Medical, LLC-2162316

PATIENT
  Age: 62 Year
  Sex: Female
  Weight: 72 kg

DRUGS (1)
  1. SUCRAID [Suspect]
     Active Substance: SACROSIDASE
     Dates: start: 20230426, end: 20230504

REACTIONS (2)
  - Flushing [Unknown]
  - Pruritus [Unknown]
